FAERS Safety Report 5752562-X (Version None)
Quarter: 2008Q2

REPORT INFORMATION
  Report Type: 
  Country: None (occurrence: None)
  Receive Date: 20080529
  Receipt Date: 20080523
  Transmission Date: 20081010
  Serious: Yes (Disabling, Other)
  Sender: FDA-Public Use
  Company Number: PHEH2008US03160

PATIENT
  Sex: Female
  Weight: 58.957 kg

DRUGS (4)
  1. RECLAST [Suspect]
     Indication: OSTEOPOROSIS
     Dosage: 5 MG, ONCE YEARLY
     Dates: start: 20080325, end: 20080325
  2. CALCIUM [Concomitant]
     Dosage: UNK
     Route: 048
  3. LISINOPRIL [Concomitant]
     Indication: HYPERTENSION
     Dosage: 10 MG, QD
  4. MAGNESIUM [Concomitant]
     Dosage: UNK
     Route: 048

REACTIONS (13)
  - ABASIA [None]
  - BALANCE DISORDER [None]
  - CONFUSIONAL STATE [None]
  - DIZZINESS [None]
  - HEADACHE [None]
  - HYPERSENSITIVITY [None]
  - HYPOACUSIS [None]
  - MENIERE'S DISEASE [None]
  - MOVEMENT DISORDER [None]
  - NAUSEA [None]
  - TINNITUS [None]
  - VERTIGO [None]
  - VOMITING [None]
